FAERS Safety Report 9336818 (Version 2)
Quarter: 2013Q2

REPORT INFORMATION
  Report Type: Report from Study
  Country: US (occurrence: US)
  Receive Date: 20130607
  Receipt Date: 20130611
  Transmission Date: 20140414
  Serious: Yes (Death)
  Sender: FDA-Public Use
  Company Number: PHEH2013US012314

PATIENT
  Sex: Female
  Weight: 34.47 kg

DRUGS (5)
  1. SANDOSTATIN LAR DEPOT [Suspect]
     Indication: DIARRHOEA
     Dosage: 30 MG, MONTHLY
     Route: 030
     Dates: start: 20130308
  2. SANDOSTATIN LAR DEPOT [Suspect]
     Dosage: 30 MG, MONTHLY
     Route: 030
  3. SANDOSTATIN LAR DEPOT [Suspect]
     Dosage: 30 MG, MONTHLY
     Route: 030
     Dates: start: 20130502
  4. LORTAB [Concomitant]
     Dosage: 10 MG, UNK
  5. MEGACE [Concomitant]
     Dosage: 800 MG, DAILY
     Route: 048

REACTIONS (1)
  - Malignant neoplasm progression [Fatal]
